FAERS Safety Report 9056518 (Version 11)
Quarter: 2014Q2

REPORT INFORMATION
  Report Type: Spontaneous
  Country: US (occurrence: US)
  Receive Date: 20130204
  Receipt Date: 20140626
  Transmission Date: 20141212
  Serious: Yes (Hospitalization)
  Sender: FDA-Public Use
  Company Number: US-GLAXOSMITHKLINE-A1001234A

PATIENT
  Age: 44 Year
  Sex: Female

DRUGS (2)
  1. FLOLAN [Suspect]
     Indication: PULMONARY ARTERIAL HYPERTENSION
     Dosage: 34.5NGKM CONTINUOUS
     Route: 042
     Dates: start: 20100827
  2. ANTIBIOTICS [Concomitant]
     Route: 042

REACTIONS (22)
  - Sepsis [Unknown]
  - Device related infection [Unknown]
  - Headache [Unknown]
  - Pain in jaw [Not Recovered/Not Resolved]
  - Infusion site induration [Unknown]
  - Infection [Unknown]
  - Fatigue [Unknown]
  - Dyspnoea [Not Recovered/Not Resolved]
  - Dizziness [Unknown]
  - Oropharyngeal pain [Unknown]
  - Productive cough [Unknown]
  - Pain in extremity [Not Recovered/Not Resolved]
  - Alopecia [Not Recovered/Not Resolved]
  - White blood cell count decreased [Not Recovered/Not Resolved]
  - Drug administration error [Unknown]
  - Investigation [Unknown]
  - Staphylococcal infection [Unknown]
  - Drug withdrawal syndrome [Unknown]
  - Nausea [Unknown]
  - Vomiting [Unknown]
  - Delirium [Unknown]
  - Drug abuse [Unknown]
